FAERS Safety Report 7236523-X (Version None)
Quarter: 2011Q1

REPORT INFORMATION
  Report Type: 
  Country: None (occurrence: None)
  Receive Date: 20110120
  Receipt Date: 20110110
  Transmission Date: 20110831
  Serious: No
  Sender: FDA-Public Use
  Company Number: US-B.I. PHARMACEUTICALS,INC./RIDGEFIELD-2011-BP-01045BP

PATIENT
  Sex: Male

DRUGS (8)
  1. PRADAXA [Suspect]
     Indication: ATRIAL FIBRILLATION
     Dosage: 300 MG
     Route: 048
     Dates: start: 20101223, end: 20101227
  2. LEVOTHYROXINE SODIUM [Concomitant]
     Indication: HYPOTHYROIDISM
     Dosage: 125 MCG
     Route: 048
  3. COUMADIN [Concomitant]
     Dosage: 2 MG
     Route: 048
  4. METOPROLOL [Concomitant]
     Indication: ATRIAL FIBRILLATION
     Dosage: 25 MG
     Route: 048
  5. KCL ER [Concomitant]
     Indication: PROPHYLAXIS
     Dosage: 125 MEQ
     Route: 048
  6. COUMADIN [Concomitant]
     Indication: ATRIAL FIBRILLATION
     Dosage: 4 MG
     Route: 048
  7. FUROSEMIDE [Concomitant]
     Indication: FLUID RETENTION
     Dosage: 40 MG
     Route: 048
  8. SIMVASTATIN [Concomitant]
     Dosage: 80 MG
     Route: 048

REACTIONS (5)
  - CONFUSIONAL STATE [None]
  - NIGHTMARE [None]
  - NAUSEA [None]
  - DIARRHOEA [None]
  - DIZZINESS [None]
